FAERS Safety Report 23259751 (Version 5)
Quarter: 2024Q4

REPORT INFORMATION
  Report Type: Spontaneous
  Country: US (occurrence: US)
  Receive Date: 20231204
  Receipt Date: 20241212
  Transmission Date: 20250115
  Serious: Yes (Other)
  Sender: PFIZER
  Company Number: US-PFIZER INC-PV202300113987

PATIENT
  Age: 84 Year
  Sex: Female
  Weight: 62.132 kg

DRUGS (8)
  1. IBRANCE [Suspect]
     Active Substance: PALBOCICLIB
     Indication: Breast cancer female
     Dosage: 100 MG, CYCLIC(DAILY ON 1-21, THEN STOP FOR 7 DAYS, REPEAT CYCLE EVERY 28 DAYS)
     Route: 048
     Dates: start: 20221201
  2. IBRANCE [Suspect]
     Active Substance: PALBOCICLIB
     Dosage: UNK
     Dates: start: 20221212, end: 20230222
  3. IBRANCE [Suspect]
     Active Substance: PALBOCICLIB
     Dosage: 75 MG, ALTERNATE DAY(DAILY ONE TABLET EVERY OTHER DAY)
     Route: 048
     Dates: start: 20230206, end: 2023
  4. IBRANCE [Suspect]
     Active Substance: PALBOCICLIB
     Dosage: 75 MG EVERY OTHER DAY
     Dates: start: 20230805
  5. IBRANCE [Suspect]
     Active Substance: PALBOCICLIB
     Dosage: 75 MG, CYCLIC(ONE TABLET DAILY FOR 21 DAYS ON, 7 DAYS OFF EACH 28 DAY CYCLE)
     Route: 048
     Dates: start: 2023
  6. IBRANCE [Suspect]
     Active Substance: PALBOCICLIB
     Dosage: 75 MG, CYCLIC(TAKE 1 BY MONTH DAILY FOR 3 WEEKS, 2 WEEK OFF IN A 35 DAY CYCLE)
     Route: 048
     Dates: start: 20240715
  7. LETROZOLE [Suspect]
     Active Substance: LETROZOLE
     Indication: Breast cancer female
     Dosage: UNK
  8. EXEMESTANE [Concomitant]
     Active Substance: EXEMESTANE

REACTIONS (4)
  - Cytopenia [Unknown]
  - Neutropenia [Unknown]
  - Product dose omission issue [Unknown]
  - Product prescribing issue [Unknown]
